FAERS Safety Report 22148202 (Version 2)
Quarter: 2023Q2

REPORT INFORMATION
  Report Type: Spontaneous
  Country: CN (occurrence: CN)
  Receive Date: 20230328
  Receipt Date: 20230403
  Transmission Date: 20230721
  Serious: Yes (Hospitalization)
  Sender: FDA-Public Use
  Company Number: CN-002147023-NVSC2023CN067591

PATIENT
  Age: 7 Year
  Sex: Male
  Weight: 24 kg

DRUGS (2)
  1. CYCLOSPORINE [Suspect]
     Active Substance: CYCLOSPORINE
     Indication: Immunosuppression
     Dosage: 75 MG, BID
     Route: 048
     Dates: start: 20230210, end: 20230313
  2. TESTOSTERONE UNDECANOATE [Concomitant]
     Active Substance: TESTOSTERONE UNDECANOATE
     Indication: Aplastic anaemia
     Dosage: 120 MG, QD
     Route: 048
     Dates: start: 20230210, end: 20230313

REACTIONS (6)
  - Gingival hypertrophy [Not Recovered/Not Resolved]
  - Gingival pain [Recovered/Resolved]
  - Pancytopenia [Unknown]
  - Haemorrhage subcutaneous [Unknown]
  - Pyrexia [Recovered/Resolved]
  - Gingival disorder [Unknown]

NARRATIVE: CASE EVENT DATE: 20230303
